FAERS Safety Report 7616799-7 (Version None)
Quarter: 2011Q3

REPORT INFORMATION
  Report Type: 
  Country: None (occurrence: None)
  Receive Date: 20110718
  Receipt Date: 20110708
  Transmission Date: 20111222
  Serious: Yes (Hospitalization)
  Sender: FDA-Public Use
  Company Number: US-BIOGENIDEC-2011BI025586

PATIENT
  Age: 58 Year
  Sex: Female

DRUGS (3)
  1. AVONEX [Suspect]
     Indication: MULTIPLE SCLEROSIS
     Route: 030
     Dates: start: 20071101
  2. AMPYRA [Concomitant]
     Indication: PRODUCT USED FOR UNKNOWN INDICATION
  3. STEROIDS (NOS) [Concomitant]
     Indication: PROPHYLAXIS

REACTIONS (4)
  - CARDIAC DISORDER [None]
  - BAND SENSATION [None]
  - MULTIPLE SCLEROSIS [None]
  - COORDINATION ABNORMAL [None]
